FAERS Safety Report 5750005-3 (Version None)
Quarter: 2008Q2

REPORT INFORMATION
  Report Type: 
  Country: None (occurrence: None)
  Receive Date: 20080527
  Receipt Date: 20080515
  Transmission Date: 20081010
  Serious: Yes (Death)
  Sender: FDA-Public Use
  Company Number: US-ELI_LILLY_AND_COMPANY-US200708003501

PATIENT
  Age: 77 Year
  Sex: Female

DRUGS (6)
  1. CYMBALTA [Suspect]
     Indication: PERSONALITY DISORDER
     Dosage: 60 MG, UNK
     Dates: start: 20070401, end: 20070501
  2. DEPAKOTE [Concomitant]
     Dosage: 250 MG, 2/D
     Dates: start: 20070401
  3. IBUPROFEN [Concomitant]
     Dosage: 600 MG, AS NEEDED
  4. TYLENOL                                 /SCH/ [Concomitant]
     Dosage: 650 MG, AS NEEDED
  5. ALBUTEROL [Concomitant]
     Dosage: UNK, AS NEEDED
  6. LISINOPRIL [Concomitant]
     Dosage: UNK, UNK

REACTIONS (1)
  - ACUTE HEPATIC FAILURE [None]
